FAERS Safety Report 10420059 (Version 5)
Quarter: 2014Q4

REPORT INFORMATION
  Report Type: Spontaneous
  Country: JP (occurrence: None)
  Receive Date: 20140825
  Receipt Date: 20141008
  Transmission Date: 20150528
  Serious: Yes (Death, Other)
  Sender: FDA-Public Use
  Company Number: JP-016754

PATIENT
  Age: 79 Year
  Sex: Male

DRUGS (16)
  1. NEXIUM [Concomitant]
     Active Substance: ESOMEPRAZOLE MAGNESIUM
  2. DECADRON [Concomitant]
     Active Substance: DEXAMETHASONE
  3. ENSURE [Concomitant]
     Active Substance: AMINO ACIDS\DEXTROSE\ELECTROLYTES NOS\SOYBEAN OIL\VITAMINS
  4. ZOMETA [Concomitant]
     Active Substance: ZOLEDRONIC ACID
  5. METHYCOBAL [Concomitant]
     Active Substance: METHYLCOBALAMIN
  6. RANMARK (RANMARK) [Concomitant]
     Indication: PRODUCT USED FOR UNKNOWN INDICATION
     Route: 058
     Dates: start: 20140804
  7. CALCIUM CARBONATE W/MAGNESIUM CARBONATE/VITAM [Concomitant]
  8. URIEF [Concomitant]
     Active Substance: SILODOSIN
  9. VOLTAREN [Concomitant]
     Active Substance: DICLOFENAC SODIUM
  10. MIRCERA [Concomitant]
     Active Substance: PEGZEREPOETIN ALFA
  11. ZOLADEX [Concomitant]
     Active Substance: GOSERELIN ACETATE
  12. KALIMATE [Concomitant]
     Active Substance: POLYSTYRENE SULFONIC ACID
  13. DEGARELIX (GONAX) (240 MG, 80 MG) [Suspect]
     Active Substance: DEGARELIX
     Indication: PROSTATE CANCER
     Route: 058
     Dates: start: 20140509, end: 20140509
  14. MUCOSTA [Concomitant]
     Active Substance: REBAMIPIDE
  15. LYRICA [Concomitant]
     Active Substance: PREGABALIN
  16. FERROMIA [Concomitant]
     Active Substance: FERROUS CITRATE

REACTIONS (18)
  - Purpura [None]
  - Dehydration [None]
  - Vasodilatation [None]
  - Haemoglobin decreased [None]
  - Pain in extremity [None]
  - Rash [None]
  - Injection site rash [None]
  - Lymphocytic infiltration [None]
  - Hydronephrosis [None]
  - Cachexia [None]
  - Hypocalcaemia [None]
  - Petechiae [None]
  - Drug eruption [None]
  - Platelet count decreased [None]
  - Diapedesis [None]
  - Condition aggravated [None]
  - Metastases to lymph nodes [None]
  - Prostate cancer [None]

NARRATIVE: CASE EVENT DATE: 2014
